FAERS Safety Report 8080377 (Version 3)
Quarter: 2013Q1

REPORT INFORMATION
  Report Type: Spontaneous
  Country: US (occurrence: US)
  Receive Date: 20110808
  Receipt Date: 20130308
  Transmission Date: 20140127
  Serious: Yes (Hospitalization, Other)
  Sender: FDA-Public Use
  Company Number: US-ROCHE-760498

PATIENT
  Age: 23 None
  Sex: Male
  Weight: 40.4 kg

DRUGS (1)
  1. ACCUTANE [Suspect]
     Indication: ACNE CYSTIC
     Route: 048
     Dates: start: 20010403, end: 20010823

REACTIONS (16)
  - Colitis ulcerative [Unknown]
  - Intestinal obstruction [Unknown]
  - Iron deficiency anaemia [Unknown]
  - Bacterial sepsis [Unknown]
  - Abdominal abscess [Unknown]
  - Malnutrition [Recovering/Resolving]
  - Inflammatory bowel disease [Unknown]
  - Irritable bowel syndrome [Unknown]
  - Large intestine perforation [Unknown]
  - Haemorrhoids [Unknown]
  - Rectal abscess [Recovering/Resolving]
  - Perineal fistula [Unknown]
  - Anastomotic complication [Unknown]
  - Osteoporosis [Unknown]
  - Depression [Unknown]
  - Crohn^s disease [Unknown]
